FAERS Safety Report 16594809 (Version 1)
Quarter: 2019Q3

REPORT INFORMATION
  Report Type: Spontaneous
  Country: CH (occurrence: CH)
  Receive Date: 20190718
  Receipt Date: 20190718
  Transmission Date: 20191004
  Serious: Yes (Hospitalization)
  Sender: FDA-Public Use
  Company Number: CH-NOVOPROD-665356

PATIENT
  Age: 61 Year
  Sex: Female
  Weight: 72 kg

DRUGS (11)
  1. ASS CARDIO SPIRIG [Concomitant]
     Indication: PRODUCT USED FOR UNKNOWN INDICATION
     Dosage: 100 MG, QD (MORNINGS)
     Route: 065
     Dates: start: 20130702
  2. NOVORAPID [Suspect]
     Active Substance: INSULIN ASPART
     Indication: TYPE 1 DIABETES MELLITUS
     Dosage: 15.9 IU, QD
     Route: 058
     Dates: start: 20130702
  3. EXFORGE [Concomitant]
     Active Substance: AMLODIPINE BESYLATE\VALSARTAN
     Indication: PRODUCT USED FOR UNKNOWN INDICATION
     Dosage: 1 TABL. IN THE MORNING
     Dates: start: 20130702
  4. RELVAR ELLIPTA [FLUTICASONE FUROATE;VILANTEROL TRIFENATATE] [Concomitant]
     Indication: PRODUCT USED FOR UNKNOWN INDICATION
     Dosage: 184MCG/22MCG IN THE MORNING
     Route: 065
     Dates: start: 20190322
  5. NOVORAPID [Suspect]
     Active Substance: INSULIN ASPART
     Dosage: 6 IU BOLUS
     Route: 058
     Dates: start: 20190523
  6. VI-DE 3 [Concomitant]
     Active Substance: CHOLECALCIFEROL
     Indication: PRODUCT USED FOR UNKNOWN INDICATION
     Dosage: 10 GTT (DROPS), QD  (MORNINGS)
     Route: 065
     Dates: start: 20160227
  7. NOVORAPID [Suspect]
     Active Substance: INSULIN ASPART
     Dosage: 15.9 IU, QD
     Route: 058
     Dates: start: 20190524
  8. ELTROXIN LF [Concomitant]
     Indication: PRODUCT USED FOR UNKNOWN INDICATION
     Dosage: 0.1 MG, QD (MORNINGS)
     Route: 065
     Dates: start: 20190426, end: 20190523
  9. DULOXETINE HCL [Concomitant]
     Active Substance: DULOXETINE HYDROCHLORIDE
     Indication: PRODUCT USED FOR UNKNOWN INDICATION
     Dosage: 60 MG, QD (MORNING)
     Route: 065
     Dates: start: 20150504
  10. TRANSIPEG [MACROGOL 3350;POTASSIUM CHLORIDE;SODIUM BICARBONATE;SODIUM [Concomitant]
     Indication: PRODUCT USED FOR UNKNOWN INDICATION
     Dosage: IN RESERVE
     Dates: start: 20150213
  11. ATORVASTATIN [Concomitant]
     Active Substance: ATORVASTATIN
     Indication: PRODUCT USED FOR UNKNOWN INDICATION
     Dosage: 10 MG, QD (MORNINGS)
     Dates: start: 20130702

REACTIONS (3)
  - Hypoglycaemia [Recovered/Resolved]
  - Product leakage [Unknown]
  - Diabetic ketoacidosis [Recovered/Resolved]

NARRATIVE: CASE EVENT DATE: 20190522
